FAERS Safety Report 5656283-3 (Version None)
Quarter: 2008Q1

REPORT INFORMATION
  Report Type: 
  Country: None (occurrence: None)
  Receive Date: 20080309
  Receipt Date: 20070808
  Transmission Date: 20080703
  Serious: No
  Sender: FDA-Public Use
  Company Number: US-BAYER-200712003BCC

PATIENT
  Age: 85 Year
  Sex: Female
  Weight: 68 kg

DRUGS (3)
  1. ALEVE [Suspect]
     Indication: ARTHRALGIA
     Dosage: TOTAL DAILY DOSE: 440 MG  UNIT DOSE: 220 MG
     Route: 048
     Dates: start: 20070512, end: 20070622
  2. SYNTHROID [Concomitant]
     Route: 048
     Dates: start: 19620101
  3. LASIX [Concomitant]
     Route: 048

REACTIONS (6)
  - COUGH [None]
  - DIZZINESS [None]
  - DYSPEPSIA [None]
  - EYE SWELLING [None]
  - GAIT DISTURBANCE [None]
  - SINUS OPERATION [None]
